FAERS Safety Report 6413296-1 (Version None)
Quarter: 2009Q4

REPORT INFORMATION
  Report Type: 
  Country: None (occurrence: None)
  Receive Date: 20091022
  Receipt Date: 20091022
  Transmission Date: 20100525
  Serious: Yes (Hospitalization, Other)
  Sender: FDA-Public Use
  Company Number: None

PATIENT
  Age: 22 Year
  Weight: 56.6996 kg

DRUGS (1)
  1. OVIDEN 28 [Suspect]
     Indication: CONTRACEPTION
     Dosage: 1 PILL PER DAY FOR 28 DAYS

REACTIONS (6)
  - CYSTITIS [None]
  - DRUG EXPOSURE DURING PREGNANCY [None]
  - GALLBLADDER DISORDER [None]
  - MULTIPLE INJURIES [None]
  - UTERINE CERVICAL EROSION [None]
  - VAGINAL INFECTION [None]
